APPROVED DRUG PRODUCT: LEVOXYL
Active Ingredient: LEVOTHYROXINE SODIUM
Strength: 0.2MG **See current Annual Edition, 1.8 Description of Special Situations, Levothyroxine Sodium
Dosage Form/Route: TABLET;ORAL
Application: N021301 | Product #011 | TE Code: AB1,AB3
Applicant: KING PHARMACEUTICALS RESEARCH AND DEVELOPMENT LLC
Approved: May 25, 2001 | RLD: Yes | RS: Yes | Type: RX